FAERS Safety Report 9202726 (Version 2)
Quarter: 2013Q2

REPORT INFORMATION
  Report Type: Spontaneous
  Country: GB (occurrence: GB)
  Receive Date: 20130401
  Receipt Date: 20130625
  Transmission Date: 20140414
  Serious: Yes (Other)
  Sender: FDA-Public Use
  Company Number: GB-PFIZER INC-2013100378

PATIENT
  Age: 60 Year
  Sex: Female

DRUGS (10)
  1. SERTRALINE HCL [Suspect]
     Dosage: 100 MG, 1X/DAY
  2. AMLODIPINE BESILATE [Suspect]
     Dosage: 5 MG, 1X/DAY EVERY MORNING (QAM)
  3. DIAZEPAM [Suspect]
     Dosage: 2 MG, AS NEEDED
  4. LITHIUM CARBONATE [Suspect]
     Dosage: 400 MG, QPM (EVERY EVENING)
  5. SEROQUEL [Suspect]
     Dosage: 200 MG, 1X/DAY EVERY EVENING (QPM)
  6. PARACETAMOL [Suspect]
     Dosage: 500 MG, AS NEEDED
  7. VENTOLIN [Suspect]
     Dosage: 100 UG, AS NEEDED
  8. LEVOTHYROXINE [Suspect]
     Dosage: 100 UG, 1X/DAY
  9. LEVOTHYROXINE [Suspect]
     Dosage: 25 UG, 1X/DAY
  10. ASPIRIN [Suspect]
     Dosage: 75 MG, AS NEEDED

REACTIONS (8)
  - Tardive dyskinesia [Unknown]
  - Balance disorder [Unknown]
  - Disturbance in attention [Unknown]
  - Swollen tongue [Unknown]
  - Salivary hypersecretion [Unknown]
  - Cough [Unknown]
  - Radial nerve palsy [Unknown]
  - Tremor [Unknown]
